FAERS Safety Report 11930552 (Version 1)
Quarter: 2016Q1

REPORT INFORMATION
  Report Type: Spontaneous
  Country: CA (occurrence: None)
  Receive Date: 20160120
  Receipt Date: 20160120
  Transmission Date: 20160526
  Serious: Yes (Hospitalization)
  Sender: FDA-Public Use
  Company Number: None

PATIENT
  Age: 3 Year
  Sex: Female
  Weight: 20.1 kg

DRUGS (5)
  1. DEXAMETHASONE. [Suspect]
     Active Substance: DEXAMETHASONE
     Dates: end: 20160104
  2. METHOTREXATE [Suspect]
     Active Substance: METHOTREXATE
     Route: 038
     Dates: end: 20160108
  3. ONCASPAR [Suspect]
     Active Substance: PEGASPARGASE
     Dates: end: 20160103
  4. VINCRISTINE SULFATE. [Suspect]
     Active Substance: VINCRISTINE SULFATE
     Route: 042
     Dates: end: 20160108
  5. CYTARABINE. [Suspect]
     Active Substance: CYTARABINE
     Route: 038
     Dates: end: 20151229

REACTIONS (7)
  - Abdominal pain [None]
  - Pallor [None]
  - Hyperglycaemia [None]
  - Bacterial test positive [None]
  - Staphylococcus test positive [None]
  - Decreased appetite [None]
  - Enterococcus test positive [None]

NARRATIVE: CASE EVENT DATE: 20160105
